FAERS Safety Report 6699504-0 (Version None)
Quarter: 2010Q2

REPORT INFORMATION
  Report Type: 
  Country: None (occurrence: None)
  Receive Date: 20100427
  Receipt Date: 20100427
  Transmission Date: 20101027
  Serious: Yes (Hospitalization, Other)
  Sender: FDA-Public Use
  Company Number: None

PATIENT
  Sex: Female
  Weight: 63.5036 kg

DRUGS (1)
  1. NEVANAC [Suspect]
     Indication: RETINAL VASCULAR OCCLUSION
     Dosage: 1 DROP 4 TIMES/DAY OPHTHALMIC
     Route: 047
     Dates: start: 20100402, end: 20100414

REACTIONS (4)
  - HEADACHE [None]
  - MIGRAINE [None]
  - NAUSEA [None]
  - TRANSIENT ISCHAEMIC ATTACK [None]
